FAERS Safety Report 20595104 (Version 2)
Quarter: 2022Q2

REPORT INFORMATION
  Report Type: Report from Study
  Country: CA (occurrence: None)
  Receive Date: 20220315
  Receipt Date: 20220408
  Transmission Date: 20220721
  Serious: Yes (Other)
  Sender: FDA-Public Use
  Company Number: 2022A057278

PATIENT
  Age: 64 Year
  Sex: Female

DRUGS (11)
  1. FASENRA [Suspect]
     Active Substance: BENRALIZUMAB
     Indication: Asthma
     Dosage: 30.0MG UNKNOWN
     Route: 058
     Dates: start: 20191104
  2. AMOXICILLIN [Concomitant]
     Active Substance: AMOXICILLIN
     Route: 048
  3. PREDNISONE [Concomitant]
     Active Substance: PREDNISONE
     Dosage: 5 DAYS
     Route: 048
  4. ROSUVASTATIN [Concomitant]
     Active Substance: ROSUVASTATIN
  5. DIAZEPAM [Concomitant]
     Active Substance: DIAZEPAM
     Dosage: 10.0MG UNKNOWN
  6. CITALOPRAM [Concomitant]
     Active Substance: CITALOPRAM HYDROBROMIDE
     Dosage: 30.0MG UNKNOWN
  7. ALVESCO [Concomitant]
     Active Substance: CICLESONIDE
     Dosage: 200MCG 2 PUFFS ONCE DAILY
  8. ATROVENT [Concomitant]
     Active Substance: IPRATROPIUM BROMIDE
     Dosage: 20MCG
  9. SPIRIVA [Concomitant]
     Active Substance: TIOTROPIUM BROMIDE MONOHYDRATE
     Dosage: 18MCG ONCE DAILY
  10. OLODATEROL HYDROCHLORIDE\TIOTROPIUM BROMIDE MONOHYDRATE [Concomitant]
     Active Substance: OLODATEROL HYDROCHLORIDE\TIOTROPIUM BROMIDE MONOHYDRATE
     Dosage: 2.5MCG TWICE DAILY
  11. VENTOLIN [Concomitant]
     Active Substance: ALBUTEROL SULFATE
     Dosage: 100MCG.

REACTIONS (5)
  - Asthma [Recovered/Resolved]
  - Drug ineffective [Unknown]
  - Suspected COVID-19 [Recovered/Resolved]
  - Hypertension [Unknown]
  - Diarrhoea [Unknown]
